FAERS Safety Report 24408956 (Version 2)
Quarter: 2024Q4

REPORT INFORMATION
  Report Type: Report from Study
  Country: US (occurrence: US)
  Receive Date: 20241007
  Receipt Date: 20241015
  Transmission Date: 20250115
  Serious: Yes (Hospitalization)
  Sender: ABBVIE
  Company Number: US-ABBVIE-5953093

PATIENT
  Sex: Female
  Weight: 79.378 kg

DRUGS (4)
  1. RINVOQ [Suspect]
     Active Substance: UPADACITINIB
     Indication: Psoriatic arthropathy
     Route: 048
     Dates: start: 20240301, end: 20240916
  2. LOSARTAN [Concomitant]
     Active Substance: LOSARTAN
     Indication: Hypertension
  3. HYDRALAZINE [Concomitant]
     Active Substance: HYDRALAZINE HYDROCHLORIDE
     Indication: Hypertension
  4. CLOPIDOGREL BESILATE [Concomitant]
     Active Substance: CLOPIDOGREL BESILATE
     Indication: Hypertension

REACTIONS (17)
  - Diverticulitis [Recovering/Resolving]
  - Spinal pain [Not Recovered/Not Resolved]
  - Pollakiuria [Recovering/Resolving]
  - Urinary tract infection [Recovering/Resolving]
  - Bacterial infection [Recovering/Resolving]
  - Immunodeficiency [Unknown]
  - Gastrointestinal disorder [Recovering/Resolving]
  - Blood potassium abnormal [Unknown]
  - White blood cell count increased [Unknown]
  - Peripheral swelling [Not Recovered/Not Resolved]
  - Joint swelling [Unknown]
  - Blood magnesium abnormal [Unknown]
  - Psoriatic arthropathy [Unknown]
  - Abdominal pain upper [Recovering/Resolving]
  - Gastric dilatation [Recovering/Resolving]
  - Neck pain [Not Recovered/Not Resolved]
  - Back pain [Recovering/Resolving]

NARRATIVE: CASE EVENT DATE: 20240101
